FAERS Safety Report 6958083-0 (Version None)
Quarter: 2010Q3

REPORT INFORMATION
  Report Type: 
  Country: None (occurrence: None)
  Receive Date: 20100831
  Receipt Date: 20100823
  Transmission Date: 20110219
  Serious: Yes (Other)
  Sender: FDA-Public Use
  Company Number: US-SANOFI-AVENTIS-2010SA050852

PATIENT
  Age: 52 Year
  Sex: Female

DRUGS (2)
  1. SOLOSTAR [Suspect]
     Dates: start: 20090101
  2. LANTUS [Suspect]
     Dosage: 7 UNITS IN THE AM AND 9 UNITS IN THE PM
     Route: 058
     Dates: start: 20090101

REACTIONS (3)
  - CATARACT [None]
  - HYPERGLYCAEMIA [None]
  - PRODUCT QUALITY ISSUE [None]
